FAERS Safety Report 22168716 (Version 3)
Quarter: 2023Q2

REPORT INFORMATION
  Report Type: Spontaneous
  Country: US (occurrence: US)
  Receive Date: 20230403
  Receipt Date: 20230414
  Transmission Date: 20230721
  Serious: No
  Sender: FDA-Public Use
  Company Number: US-PFIZER INC-202300133255

PATIENT
  Age: 73 Year
  Sex: Female
  Weight: 74.84 kg

DRUGS (2)
  1. CYTOMEL [Suspect]
     Active Substance: LIOTHYRONINE SODIUM
     Indication: Hypothyroidism
     Dosage: 45 UG
  2. CYTOMEL [Suspect]
     Active Substance: LIOTHYRONINE SODIUM
     Dosage: 25 UG, 1X/DAY, (IN THE MORNING BEFORE BREAKFAST)
     Route: 048

REACTIONS (1)
  - Drug ineffective [Unknown]
